FAERS Safety Report 4991857-4 (Version None)
Quarter: 2006Q2

REPORT INFORMATION
  Report Type: 
  Country: None (occurrence: None)
  Receive Date: 20060502
  Receipt Date: 20060419
  Transmission Date: 20061013
  Serious: Yes (Death, Hospitalization)
  Sender: FDA-Public Use
  Company Number: S06-CAN-01345-01

PATIENT
  Age: 26 Year
  Sex: Male
  Weight: 63.5036 kg

DRUGS (1)
  1. CELEXA [Suspect]
     Dosage: 40 MG QD PO
     Route: 048

REACTIONS (2)
  - COMPLETED SUICIDE [None]
  - INJURY ASPHYXIATION [None]
